FAERS Safety Report 5254698-9 (Version None)
Quarter: 2007Q1

REPORT INFORMATION
  Report Type: 
  Country: None (occurrence: None)
  Receive Date: 20070227
  Receipt Date: 20070222
  Transmission Date: 20070707
  Serious: Yes (Other)
  Sender: FDA-Public Use
  Company Number: 153180USA

PATIENT

DRUGS (1)
  1. CLOZAPINE [Suspect]
     Dosage: ORAL
     Route: 048

REACTIONS (2)
  - NEOPLASM MALIGNANT [None]
  - WHITE BLOOD CELL COUNT DECREASED [None]
